FAERS Safety Report 21083130 (Version 2)
Quarter: 2022Q3

REPORT INFORMATION
  Report Type: Spontaneous
  Country: US (occurrence: US)
  Receive Date: 20220714
  Receipt Date: 20220727
  Transmission Date: 20221027
  Serious: Yes (Other)
  Sender: FDA-Public Use
  Company Number: US-PFIZER INC-PV202200020943

PATIENT
  Age: 59 Year
  Sex: Female
  Weight: 88.435 kg

DRUGS (2)
  1. CELEBREX [Suspect]
     Active Substance: CELECOXIB
     Indication: Procedural pain
     Dosage: 200 MG, 2X/DAY
     Dates: start: 20220123, end: 20220404
  2. CELEBREX [Suspect]
     Active Substance: CELECOXIB
     Indication: Knee arthroplasty

REACTIONS (5)
  - Thrombosis [Recovered/Resolved]
  - Peptic ulcer [Recovered/Resolved]
  - Haematochezia [Recovered/Resolved]
  - Abdominal pain [Unknown]
  - Off label use [Recovered/Resolved]

NARRATIVE: CASE EVENT DATE: 20220123
